FAERS Safety Report 9356532 (Version 1)
Quarter: 2013Q2

REPORT INFORMATION
  Report Type: Spontaneous
  Country: FR (occurrence: None)
  Receive Date: 20130614
  Receipt Date: 20130614
  Transmission Date: 20140414
  Serious: Yes (Life-Threatening, Hospitalization)
  Sender: FDA-Public Use
  Company Number: SYM-2013-04587

PATIENT
  Age: 50 Year
  Sex: Female

DRUGS (5)
  1. TILDIEM [Suspect]
     Indication: HYPERTENSION
     Route: 048
     Dates: start: 20121112, end: 20121112
  2. TILDIEM [Suspect]
     Indication: SUICIDE ATTEMPT
     Route: 048
     Dates: start: 20121112, end: 20121112
  3. BIPRETERAX [Suspect]
     Indication: HYPERTENSION
     Route: 048
     Dates: start: 20121112, end: 20121112
  4. BIPRETERAX [Suspect]
     Indication: SUICIDE ATTEMPT
     Route: 048
     Dates: start: 20121112, end: 20121112
  5. RIFADINE (RIFAMPICIN) (RIFAMPICIN) [Concomitant]

REACTIONS (9)
  - Respiratory distress [None]
  - Renal failure acute [None]
  - Peritoneal haemorrhage [None]
  - Cardio-respiratory arrest [None]
  - Neuropathy peripheral [None]
  - Hypovolaemic shock [None]
  - Cardiogenic shock [None]
  - Intentional overdose [None]
  - Suicide attempt [None]
